FAERS Safety Report 5694173-0 (Version None)
Quarter: 2008Q2

REPORT INFORMATION
  Report Type: 
  Country: None (occurrence: None)
  Receive Date: 20080402
  Receipt Date: 20080320
  Transmission Date: 20081010
  Serious: Yes (Death, Hospitalization)
  Sender: FDA-Public Use
  Company Number: M7002-00646-SPO-US

PATIENT
  Age: 53 Year
  Sex: Male

DRUGS (3)
  1. ONTAK [Suspect]
     Indication: MYCOSIS FUNGOIDES
     Dosage: 18 MCG, INTRAVENOUS INFUSION
     Route: 042
  2. DEXAMETHASONE TAB [Concomitant]
  3. SALINE SOLUTION (SALINE MIXTURE) [Concomitant]

REACTIONS (17)
  - ACIDOSIS [None]
  - BLOOD ALBUMIN DECREASED [None]
  - CAPILLARY LEAK SYNDROME [None]
  - COLD SWEAT [None]
  - CYANOSIS [None]
  - DIZZINESS [None]
  - GENERALISED OEDEMA [None]
  - HYPOTENSION [None]
  - HYPOXIA [None]
  - MYALGIA [None]
  - ORTHOSTATIC INTOLERANCE [None]
  - PROCEDURAL COMPLICATION [None]
  - RESPIRATORY DISTRESS [None]
  - RESPIRATORY FAILURE [None]
  - RHABDOMYOLYSIS [None]
  - SEPSIS [None]
  - SYNCOPE [None]
